FAERS Safety Report 7313333-6 (Version None)
Quarter: 2011Q1

REPORT INFORMATION
  Report Type: 
  Country: None (occurrence: None)
  Receive Date: 20110225
  Receipt Date: 20110131
  Transmission Date: 20110831
  Serious: No
  Sender: FDA-Public Use
  Company Number: US-B.I. PHARMACEUTICALS,INC./RIDGEFIELD-2011-BP-01558BP

PATIENT
  Sex: Male

DRUGS (8)
  1. DUONEB [Concomitant]
     Route: 055
  2. OMEPRAZOLE [Concomitant]
     Dosage: 40 MG
     Route: 048
  3. HYDROCHLOROTHIAZIDE [Concomitant]
     Dosage: 12.5 MG
     Route: 048
  4. VYTORIN [Concomitant]
     Route: 048
  5. RANITIDINE [Concomitant]
     Dosage: 300 MG
     Route: 048
  6. RAMIPRIL [Concomitant]
     Dosage: 2.5 MG
     Route: 048
  7. SPIRIVA [Suspect]
     Indication: CHRONIC OBSTRUCTIVE PULMONARY DISEASE
     Dosage: 18 MCG
     Route: 055
     Dates: start: 20050101
  8. ASPIRIN [Concomitant]
     Dosage: 325 MG
     Route: 048

REACTIONS (2)
  - COUGH [None]
  - DYSPNOEA [None]
